FAERS Safety Report 7223767-6 (Version None)
Quarter: 2011Q1

REPORT INFORMATION
  Report Type: 
  Country: None (occurrence: None)
  Receive Date: 20110112
  Receipt Date: 20101116
  Transmission Date: 20110831
  Serious: No
  Sender: FDA-Public Use
  Company Number: US-ALLERGAN-1014844US

PATIENT
  Age: 80 Year
  Sex: Male

DRUGS (1)
  1. RESTASIS [Suspect]
     Indication: DRY EYE
     Dosage: UNK
     Route: 047
     Dates: start: 20100701

REACTIONS (5)
  - EYE PRURITUS [None]
  - EYE PAIN [None]
  - EYE DISCHARGE [None]
  - DRUG INEFFECTIVE [None]
  - LACRIMATION INCREASED [None]
